FAERS Safety Report 7682913-0 (Version None)
Quarter: 2011Q3

REPORT INFORMATION
  Report Type: 
  Country: None (occurrence: None)
  Receive Date: 20110815
  Receipt Date: 20110808
  Transmission Date: 20111222
  Serious: Yes (Hospitalization)
  Sender: FDA-Public Use
  Company Number: CN-ROCHE-795402

PATIENT
  Sex: Male
  Weight: 71 kg

DRUGS (3)
  1. RIBAVIRIN [Suspect]
     Dosage: LAST DOSE PRIOR TO SAE: 16 MAY 2011
     Route: 048
     Dates: start: 20100120
  2. PEGINTERFERON ALFA-2A [Suspect]
     Dosage: LAST DOSE PRIOR TO SAE: 16 MAY 2011.  ROUTE: IH, DOSAGE FORM: INJECTION
     Route: 050
     Dates: start: 20100120
  3. NOVOLIN 70/30 [Concomitant]
     Dates: start: 20000101

REACTIONS (1)
  - PORTAL HYPERTENSION [None]
